FAERS Safety Report 22643961 (Version 2)
Quarter: 2023Q4

REPORT INFORMATION
  Report Type: Spontaneous
  Country: PL (occurrence: PL)
  Receive Date: 20230627
  Receipt Date: 20231207
  Transmission Date: 20240110
  Serious: Yes (Hospitalization, Other)
  Sender: FDA-Public Use
  Company Number: PL-ASTELLAS-2023US019095

PATIENT
  Age: 59 Year
  Sex: Female

DRUGS (3)
  1. XOSPATA [Suspect]
     Active Substance: GILTERITINIB
     Indication: Acute myeloid leukaemia recurrent
     Route: 065
     Dates: start: 20230321
  2. XOSPATA [Suspect]
     Active Substance: GILTERITINIB
     Indication: Tyrosine kinase mutation
     Dosage: 80 MG, UNKNOWN FREQ. (REDUCED DOSE, TREATMENT WAS RESUMED AT A DOSE 80 MG UNDER TOXIC CONTROL)
     Route: 065
  3. XOSPATA [Suspect]
     Active Substance: GILTERITINIB
     Indication: FLT3 gene mutation

REACTIONS (4)
  - Haematotoxicity [Unknown]
  - Pancytopenia [Unknown]
  - Hepatotoxicity [Unknown]
  - Blood creatine phosphokinase increased [Unknown]
